FAERS Safety Report 17251632 (Version 4)
Quarter: 2020Q3

REPORT INFORMATION
  Report Type: Spontaneous
  Country: US (occurrence: US)
  Receive Date: 20200109
  Receipt Date: 20200714
  Transmission Date: 20201102
  Serious: Yes (Other)
  Sender: FDA-Public Use
  Company Number: US-PFIZER INC-2020008799

PATIENT
  Age: 59 Year
  Sex: Male

DRUGS (1)
  1. LYRICA [Suspect]
     Active Substance: PREGABALIN
     Dosage: UNK

REACTIONS (5)
  - Road traffic accident [Unknown]
  - Back disorder [Unknown]
  - Neuropathy peripheral [Unknown]
  - Musculoskeletal discomfort [Unknown]
  - Pain in extremity [Unknown]
